FAERS Safety Report 7104953-2 (Version None)
Quarter: 2010Q4

REPORT INFORMATION
  Report Type: 
  Country: None (occurrence: None)
  Receive Date: 20101116
  Receipt Date: 20101103
  Transmission Date: 20110411
  Serious: Yes (Other)
  Sender: FDA-Public Use
  Company Number: PHFR2010GB04471

PATIENT
  Sex: Male

DRUGS (4)
  1. CLOZARIL [Suspect]
     Indication: SCHIZOPHRENIA
     Dosage: 650 MG/DAY
     Route: 048
     Dates: start: 20080807
  2. TEMAZEPAM [Suspect]
     Indication: ANXIETY
     Dosage: UNK
     Route: 048
  3. PROCYCLIDINE HYDROCHLORIDE 2MG TAB [Concomitant]
     Indication: EXTRAPYRAMIDAL DISORDER
     Dosage: UNK
     Route: 048
  4. VENLAFAXINE [Concomitant]
     Indication: DEPRESSION
     Dosage: UNK
     Route: 048

REACTIONS (1)
  - PROSTATE CANCER [None]
